FAERS Safety Report 23112513 (Version 1)
Quarter: 2023Q4

REPORT INFORMATION
  Report Type: Spontaneous
  Country: US (occurrence: US)
  Receive Date: 20231027
  Receipt Date: 20231027
  Transmission Date: 20240110
  Serious: No
  Sender: FDA-Public Use
  Company Number: US-SA-SAC20231025000154

PATIENT
  Age: 60 Year
  Sex: Male
  Weight: 88.45 kg

DRUGS (7)
  1. DUPIXENT [Suspect]
     Active Substance: DUPILUMAB
     Indication: Asthma
     Dosage: 300 MG, QOW
     Route: 058
     Dates: start: 202304
  2. ATORVASTATIN CALCIUM [Concomitant]
     Active Substance: ATORVASTATIN CALCIUM
  3. CELEBREX [Concomitant]
     Active Substance: CELECOXIB
  4. FISH OIL [Concomitant]
     Active Substance: FISH OIL
  5. GLUCOSAMINE [Concomitant]
     Active Substance: GLUCOSAMINE
  6. MOMETASONE FUROATE [Concomitant]
     Active Substance: MOMETASONE FUROATE
  7. VITAMINS [Concomitant]
     Active Substance: VITAMINS

REACTIONS (3)
  - Knee deformity [Not Recovered/Not Resolved]
  - Joint stiffness [Not Recovered/Not Resolved]
  - Arthralgia [Not Recovered/Not Resolved]

NARRATIVE: CASE EVENT DATE: 20230101
